FAERS Safety Report 8921085 (Version 2)
Quarter: 2013Q1

REPORT INFORMATION
  Report Type: Spontaneous
  Country: US (occurrence: US)
  Receive Date: 20121122
  Receipt Date: 20130315
  Transmission Date: 20140127
  Serious: Yes (Other)
  Sender: FDA-Public Use
  Company Number: US-ROCHE-1051081

PATIENT
  Sex: Female
  Weight: 65.38 kg

DRUGS (6)
  1. ACCUTANE [Suspect]
     Indication: ACNE
     Route: 048
     Dates: start: 199803, end: 199808
  2. ACCUTANE [Suspect]
     Route: 048
     Dates: start: 200007, end: 2003
  3. ACCUTANE [Suspect]
     Route: 048
     Dates: start: 2004
  4. ACCUTANE [Suspect]
     Route: 048
     Dates: start: 2005
  5. SUDAFED [Concomitant]
  6. BENADRYL [Concomitant]

REACTIONS (3)
  - Colitis ulcerative [Unknown]
  - Anxiety [Unknown]
  - Inflammatory bowel disease [Unknown]
